FAERS Safety Report 11065028 (Version 2)
Quarter: 2015Q2

REPORT INFORMATION
  Report Type: Spontaneous
  Country: US (occurrence: US)
  Receive Date: 20150424
  Receipt Date: 20150525
  Transmission Date: 20150821
  Serious: No
  Sender: FDA-Public Use
  Company Number: US-JNJFOC-20150303676

PATIENT
  Sex: Female

DRUGS (8)
  1. XYREM [Concomitant]
     Active Substance: SODIUM OXYBATE
     Indication: SLEEP DISORDER
     Route: 048
     Dates: start: 200410, end: 2004
  2. XYREM [Concomitant]
     Active Substance: SODIUM OXYBATE
     Indication: CATAPLEXY
     Route: 048
     Dates: start: 200410, end: 2004
  3. XYREM [Concomitant]
     Active Substance: SODIUM OXYBATE
     Indication: CATAPLEXY
     Route: 048
     Dates: start: 200509
  4. XYREM [Concomitant]
     Active Substance: SODIUM OXYBATE
     Indication: SLEEP DISORDER
     Route: 048
     Dates: start: 200509
  5. TRAMADOL [Concomitant]
     Active Substance: TRAMADOL
     Indication: ARTHRITIS
     Route: 048
  6. XYREM [Concomitant]
     Active Substance: SODIUM OXYBATE
     Indication: NARCOLEPSY
     Route: 048
     Dates: start: 200410, end: 2004
  7. TOPAMAX [Suspect]
     Active Substance: TOPIRAMATE
     Indication: PAIN MANAGEMENT
     Route: 048
  8. XYREM [Concomitant]
     Active Substance: SODIUM OXYBATE
     Indication: NARCOLEPSY
     Route: 048
     Dates: start: 200509

REACTIONS (2)
  - Product use issue [Unknown]
  - Somnolence [Unknown]
